FAERS Safety Report 10662836 (Version 2)
Quarter: 2015Q4

REPORT INFORMATION
  Report Type: Spontaneous
  Country: US (occurrence: US)
  Receive Date: 20141218
  Receipt Date: 20151209
  Transmission Date: 20160304
  Serious: No
  Sender: FDA-Public Use
  Company Number: US-GALDERMA-US14003912

PATIENT
  Sex: Female

DRUGS (8)
  1. FINACEA [Concomitant]
     Active Substance: AZELAIC ACID
     Indication: ROSACEA
     Dosage: 15%
     Route: 061
     Dates: start: 201304, end: 201310
  2. METROGEL [Suspect]
     Active Substance: METRONIDAZOLE
     Indication: ROSACEA
     Dosage: 0.75%
     Route: 061
     Dates: start: 2000, end: 2006
  3. GLUCOSAMINE CHONDROTIN MSN [Concomitant]
     Indication: ARTHRALGIA
     Route: 048
     Dates: start: 2000
  4. METROGEL [Concomitant]
     Active Substance: METRONIDAZOLE
     Indication: ROSACEA
     Dosage: 1%
     Route: 061
     Dates: end: 201304
  5. STATINS [Concomitant]
     Active Substance: UNSPECIFIED INGREDIENT
     Route: 048
  6. METROGEL [Concomitant]
     Active Substance: METRONIDAZOLE
     Indication: ROSACEA
     Dosage: 1%
     Route: 061
     Dates: start: 201310
  7. VALTREX EQ [Concomitant]
     Indication: HERPES VIRUS INFECTION
     Dosage: 500 MG
     Route: 048
     Dates: start: 1990
  8. SYNTHROID [Concomitant]
     Active Substance: LEVOTHYROXINE SODIUM
     Indication: HYPOTHYROIDISM
     Route: 048
     Dates: start: 1997

REACTIONS (6)
  - Intervertebral disc protrusion [Recovered/Resolved]
  - Sensory disturbance [Not Recovered/Not Resolved]
  - Pain in extremity [Recovered/Resolved]
  - Paraesthesia [Not Recovered/Not Resolved]
  - Neuropathy peripheral [Not Recovered/Not Resolved]
  - Inappropriate schedule of drug administration [Recovered/Resolved]

NARRATIVE: CASE EVENT DATE: 2000
